FAERS Safety Report 18497240 (Version 1)
Quarter: 2020Q4

REPORT INFORMATION
  Report Type: Spontaneous
  Country: GB (occurrence: GB)
  Receive Date: 20201112
  Receipt Date: 20201112
  Transmission Date: 20210114
  Serious: Yes (Congenital Anomaly)
  Sender: FDA-Public Use
  Company Number: GB-FOUNDATIONCONSUMERHC-2020-UK-000249

PATIENT
  Sex: 0

DRUGS (1)
  1. LEVONORGESTREL (UNSPECIFIED) [Suspect]
     Active Substance: LEVONORGESTREL
     Indication: FOETAL EXPOSURE TIMING UNSPECIFIED
     Dosage: 1.5 MG, 1 DOSE
     Route: 065

REACTIONS (3)
  - Atrioventricular septal defect [Recovered/Resolved with Sequelae]
  - Foetal exposure timing unspecified [Unknown]
  - Naevus flammeus [Recovered/Resolved with Sequelae]
